FAERS Safety Report 18284473 (Version 1)
Quarter: 2020Q3

REPORT INFORMATION
  Report Type: Spontaneous
  Country: JP (occurrence: JP)
  Receive Date: 20200918
  Receipt Date: 20200918
  Transmission Date: 20201103
  Serious: Yes (Death, Other)
  Sender: FDA-Public Use
  Company Number: JP-EXELIXIS-CABO-20032693

PATIENT
  Age: 67 Year
  Sex: Male

DRUGS (6)
  1. CABOMETYX [Suspect]
     Active Substance: CABOZANTINIB S-MALATE
     Dosage: 60 MG, QD
     Route: 048
     Dates: start: 20200806, end: 20200814
  2. CELECOX [Concomitant]
     Active Substance: CELECOXIB
     Dosage: UNK
     Route: 065
  3. EQUA [Concomitant]
     Active Substance: VILDAGLIPTIN
     Dosage: UNK
     Route: 065
  4. EQUA [Concomitant]
     Active Substance: VILDAGLIPTIN
     Dosage: UNK
     Route: 065
  5. CELECOX [Concomitant]
     Active Substance: CELECOXIB
     Dosage: UNK
     Route: 065
  6. CABOMETYX [Suspect]
     Active Substance: CABOZANTINIB S-MALATE
     Indication: RENAL CELL CARCINOMA
     Dosage: 40 MG, QD
     Route: 048
     Dates: start: 20200727, end: 20200805

REACTIONS (4)
  - Cerebral haemorrhage [Fatal]
  - Renal cell carcinoma [Fatal]
  - Disease progression [Fatal]
  - Blood pressure increased [Unknown]

NARRATIVE: CASE EVENT DATE: 202008
